FAERS Safety Report 8004783-3 (Version None)
Quarter: 2011Q4

REPORT INFORMATION
  Report Type: 
  Country: None (occurrence: None)
  Receive Date: 20111223
  Receipt Date: 20111216
  Transmission Date: 20120403
  Serious: Yes (Life-Threatening)
  Sender: FDA-Public Use
  Company Number: JP-BRISTOL-MYERS SQUIBB COMPANY-16309114

PATIENT
  Age: 81 Year
  Sex: Male

DRUGS (3)
  1. GLIMICRON [Concomitant]
     Indication: DIABETES MELLITUS
     Route: 048
  2. METFORMIN HCL [Suspect]
     Indication: DIABETES MELLITUS
     Route: 048
     Dates: start: 20110926, end: 20110101
  3. CRESTOR [Concomitant]
     Route: 048

REACTIONS (5)
  - BLOOD BILIRUBIN INCREASED [None]
  - HAEMATURIA [None]
  - HEPATITIS ACUTE [None]
  - BILIRUBINURIA [None]
  - LIVER FUNCTION TEST ABNORMAL [None]
